FAERS Safety Report 7900817 (Version 4)
Quarter: 2015Q2

REPORT INFORMATION
  Report Type: Spontaneous
  Country: US (occurrence: US)
  Receive Date: 20110415
  Receipt Date: 20150511
  Transmission Date: 20150821
  Serious: Yes (Death, Life-Threatening, Hospitalization, Congenital Anomaly, Other)
  Sender: FDA-Public Use
  Company Number: US-ELI_LILLY_AND_COMPANY-US201104001514

PATIENT

DRUGS (6)
  1. PROCARDIA [Concomitant]
     Active Substance: NIFEDIPINE
     Route: 064
  2. PROCARDIA [Concomitant]
     Active Substance: NIFEDIPINE
     Route: 064
  3. PROZAC [Suspect]
     Active Substance: FLUOXETINE HYDROCHLORIDE
     Indication: DEPRESSION
     Dosage: 1 DF, UNKNOWN
     Route: 064
  4. PRENAT                             /00023601/ [Concomitant]
     Route: 064
  5. PROZAC [Suspect]
     Active Substance: FLUOXETINE HYDROCHLORIDE
     Indication: DEPRESSION
     Dosage: 1 DF, UNKNOWN
     Route: 064
  6. PRENAT                             /00023601/ [Concomitant]
     Route: 064

REACTIONS (23)
  - Respiratory depression [Not Recovered/Not Resolved]
  - Chromosomal deletion [Not Recovered/Not Resolved]
  - Coarctation of the aorta [Not Recovered/Not Resolved]
  - Ventricular septal defect [Not Recovered/Not Resolved]
  - Renal failure [Not Recovered/Not Resolved]
  - Anomalous pulmonary venous connection [Fatal]
  - Hyperglycaemia [Unknown]
  - Pleural effusion [Unknown]
  - Disseminated intravascular coagulation [Not Recovered/Not Resolved]
  - Cystic lymphangioma [Not Recovered/Not Resolved]
  - Pericardial haemorrhage [Unknown]
  - Adrenal insufficiency [Not Recovered/Not Resolved]
  - Meconium in amniotic fluid [Recovered/Resolved]
  - Foetal exposure during pregnancy [Recovered/Resolved]
  - Patent ductus arteriosus [Not Recovered/Not Resolved]
  - Thrombocytopenia [Unknown]
  - Hypertension [Unknown]
  - Tricuspid valve incompetence [Not Recovered/Not Resolved]
  - Cytogenetic abnormality [Not Recovered/Not Resolved]
  - Atrial septal defect [Not Recovered/Not Resolved]
  - Pericardial effusion [Unknown]
  - Generalised oedema [Not Recovered/Not Resolved]
  - Seizure [Not Recovered/Not Resolved]
